FAERS Safety Report 4647420-8 (Version None)
Quarter: 2005Q2

REPORT INFORMATION
  Report Type: 
  Country: None (occurrence: None)
  Receive Date: 20050426
  Receipt Date: 20050426
  Transmission Date: 20051028
  Serious: Yes (Hospitalization)
  Sender: FDA-Public Use
  Company Number: None

PATIENT
  Age: 3 Year
  Sex: Male
  Weight: 14 kg

DRUGS (5)
  1. IMMUNOGLOBULIN [Suspect]
     Indication: BLOOD IMMUNOGLOBULIN M INCREASED
     Dosage: 12.5GM Q3W IV
     Route: 042
     Dates: start: 20050101
  2. IMMUNOGLOBULIN [Suspect]
     Indication: IRON DEFICIENCY ANAEMIA
     Dosage: 12.5GM Q3W IV
     Route: 042
     Dates: start: 20050101
  3. IMMUNOGLOBULIN [Suspect]
     Indication: NEUTROPENIA
     Dosage: 12.5GM Q3W IV
     Route: 042
     Dates: start: 20050101
  4. PENTAMIDINE ISETHIONATE [Suspect]
     Dosage: 55MG  Q3W PO
     Route: 048
     Dates: start: 20050201
  5. NEUPOGEN [Concomitant]

REACTIONS (4)
  - ANAPHYLACTIC REACTION [None]
  - CYANOSIS [None]
  - HEART RATE INCREASED [None]
  - INFUSION RELATED REACTION [None]
